FAERS Safety Report 6217801-X (Version None)
Quarter: 2009Q2

REPORT INFORMATION
  Report Type: 
  Country: None (occurrence: None)
  Receive Date: 20090608
  Receipt Date: 20090528
  Transmission Date: 20091009
  Serious: Yes (Death, Hospitalization)
  Sender: FDA-Public Use
  Company Number: JP-BAYER-200911527BYL

PATIENT
  Age: 76 Year
  Sex: Male
  Weight: 46 kg

DRUGS (8)
  1. NEXAVAR [Suspect]
     Indication: RENAL CELL CARCINOMA STAGE IV
     Dosage: TOTAL DAILY DOSE: 800 MG  UNIT DOSE: 200 MG
     Route: 048
     Dates: start: 20080523, end: 20080623
  2. NEXAVAR [Suspect]
     Route: 048
     Dates: end: 20090427
  3. NEXAVAR [Suspect]
     Dosage: UNIT DOSE: 200 MG
     Route: 048
     Dates: start: 20080624
  4. DANTRIUM [Concomitant]
     Dosage: TOTAL DAILY DOSE: 50 MG
     Route: 048
  5. ADALAT CC [Concomitant]
     Dosage: TOTAL DAILY DOSE: 60 MG
     Route: 048
  6. CARDENALIN [Concomitant]
     Dosage: TOTAL DAILY DOSE: 2 MG
     Route: 048
  7. AMLODIPINE [Concomitant]
     Dosage: TOTAL DAILY DOSE: 5 MG
     Route: 048
  8. LASIX [Concomitant]
     Dosage: TOTAL DAILY DOSE: 20 MG
     Route: 065

REACTIONS (4)
  - CARDIAC FAILURE [None]
  - DIARRHOEA [None]
  - HYPOTHERMIA [None]
  - PALMAR-PLANTAR ERYTHRODYSAESTHESIA SYNDROME [None]
